FAERS Safety Report 24215876 (Version 1)
Quarter: 2024Q3

REPORT INFORMATION
  Report Type: Report from Study
  Country: CO (occurrence: CO)
  Receive Date: 20240816
  Receipt Date: 20240816
  Transmission Date: 20241017
  Serious: Yes (Hospitalization, Other)
  Sender: UCB
  Company Number: CO-UCBSA-2024041289

PATIENT
  Age: 76 Year
  Sex: Female

DRUGS (3)
  1. ROTIGOTINE [Suspect]
     Active Substance: ROTIGOTINE
     Indication: Parkinson^s disease
     Dosage: 4 MILLIGRAM, ONCE DAILY (QD)
     Route: 062
     Dates: start: 20220114, end: 20230608
  2. ROTIGOTINE [Suspect]
     Active Substance: ROTIGOTINE
     Dosage: 6 MILLIGRAM, ONCE DAILY (QD)
     Route: 062
     Dates: start: 20230609
  3. CARBIDOPA\LEVODOPA [Concomitant]
     Active Substance: CARBIDOPA\LEVODOPA
     Indication: Product used for unknown indication
     Dosage: UNK

REACTIONS (6)
  - Respiratory failure [Recovered/Resolved]
  - Tracheal obstruction [Recovered/Resolved]
  - Oropharyngeal plaque [Recovered/Resolved]
  - Bedridden [Not Recovered/Not Resolved]
  - Tracheostomy [Recovered/Resolved]
  - Gastrostomy [Recovered/Resolved]

NARRATIVE: CASE EVENT DATE: 20240630
